FAERS Safety Report 7762453-0 (Version None)
Quarter: 2011Q3

REPORT INFORMATION
  Report Type: 
  Country: None (occurrence: None)
  Receive Date: 20110920
  Receipt Date: 20110913
  Transmission Date: 20111222
  Serious: Yes (Other)
  Sender: FDA-Public Use
  Company Number: AU-ASTRAZENECA-2011SE10663

PATIENT
  Age: 79 Year
  Sex: Female

DRUGS (1)
  1. ARIMIDEX [Suspect]
     Route: 048
     Dates: start: 20050601

REACTIONS (5)
  - SKIN CANCER [None]
  - HOT FLUSH [None]
  - JOINT STIFFNESS [None]
  - PHANTOM PAIN [None]
  - ARTHRALGIA [None]
